FAERS Safety Report 21139267 (Version 7)
Quarter: 2022Q4

REPORT INFORMATION
  Report Type: Spontaneous
  Country: JP (occurrence: JP)
  Receive Date: 20220727
  Receipt Date: 20221208
  Transmission Date: 20230113
  Serious: Yes (Other)
  Sender: FDA-Public Use
  Company Number: JP-ABBVIE-22K-087-4475927-00

PATIENT
  Age: 63 Year
  Sex: Male
  Weight: 48 kg

DRUGS (5)
  1. GLECAPREVIR\PIBRENTASVIR [Suspect]
     Active Substance: GLECAPREVIR\PIBRENTASVIR
     Indication: Chronic hepatitis C
     Dosage: 3 TABLET
     Route: 048
     Dates: start: 20220705, end: 20220721
  2. URSODIOL [Concomitant]
     Active Substance: URSODIOL
     Indication: Biliary tract disorder
     Dosage: TIME INTERVAL: 0.33333333 DAYS: 300 MILLIGRAM
     Route: 048
     Dates: start: 20220719, end: 20220915
  3. FEBUXOSTAT [Concomitant]
     Active Substance: FEBUXOSTAT
     Indication: Hyperuricaemia
     Dosage: 20 MILLIGRAM
     Route: 048
     Dates: start: 20220405, end: 20220802
  4. LANSOPRAZOLE [Concomitant]
     Active Substance: LANSOPRAZOLE
     Indication: Gastritis
     Dosage: 15 MILLIGRAM
     Route: 048
     Dates: start: 20211210
  5. BISOPROLOL [Suspect]
     Active Substance: BISOPROLOL
     Indication: Hypertension
     Dosage: 4 MILLIGRAM
     Route: 062
     Dates: start: 20211013, end: 20220802

REACTIONS (8)
  - Blood bilirubin increased [Recovering/Resolving]
  - Jaundice cholestatic [Recovering/Resolving]
  - Skin atrophy [Recovering/Resolving]
  - Hypotension [Recovering/Resolving]
  - Biliary dilatation [Recovering/Resolving]
  - Hepatic cyst [Unknown]
  - Skin exfoliation [Recovering/Resolving]
  - Anaemia [Unknown]

NARRATIVE: CASE EVENT DATE: 20220719
